FAERS Safety Report 15530460 (Version 1)
Quarter: 2018Q4

REPORT INFORMATION
  Report Type: Spontaneous
  Country: FR (occurrence: FR)
  Receive Date: 20181018
  Receipt Date: 20181018
  Transmission Date: 20190205
  Serious: Yes (Hospitalization)
  Sender: FDA-Public Use
  Company Number: FR-PFIZER INC-2018413829

PATIENT
  Age: 58 Year
  Sex: Male

DRUGS (6)
  1. TAZOCILLINE [Suspect]
     Active Substance: PIPERACILLIN SODIUM\TAZOBACTAM SODIUM
     Indication: INFECTION
     Dosage: 8 G, 1X/DAY
     Route: 041
     Dates: start: 20180823, end: 20180826
  2. KARDEGIC [Concomitant]
     Active Substance: ASPIRIN DL-LYSINE
     Dosage: UNK
  3. APROVEL [Concomitant]
     Active Substance: IRBESARTAN
     Dosage: UNK
  4. LOXEN [NICARDIPINE HYDROCHLORIDE] [Concomitant]
     Dosage: UNK
  5. EUPRESSYL [URAPIDIL] [Concomitant]
     Dosage: UNK
  6. LASILIX [FUROSEMIDE] [Concomitant]
     Dosage: UNK

REACTIONS (2)
  - Confusional state [Recovered/Resolved]
  - Hallucination [Recovered/Resolved]

NARRATIVE: CASE EVENT DATE: 20180825
